FAERS Safety Report 6020302-5 (Version None)
Quarter: 2008Q4

REPORT INFORMATION
  Report Type: 
  Country: None (occurrence: None)
  Receive Date: 20081223
  Receipt Date: 20081223
  Transmission Date: 20090506
  Serious: Yes (Other)
  Sender: FDA-Public Use
  Company Number: None

PATIENT
  Age: 41 Year
  Sex: Female
  Weight: 67.1324 kg

DRUGS (1)
  1. DORYX [Suspect]
     Indication: ACNE
     Dosage: 1 TABLET DAILY PO
     Route: 048
     Dates: start: 20081101, end: 20081210

REACTIONS (3)
  - HYPOAESTHESIA FACIAL [None]
  - PARAESTHESIA [None]
  - PARAESTHESIA ORAL [None]
